FAERS Safety Report 18008908 (Version 1)
Quarter: 2020Q3

REPORT INFORMATION
  Report Type: Spontaneous
  Country: GB (occurrence: GB)
  Receive Date: 20200710
  Receipt Date: 20200710
  Transmission Date: 20201103
  Serious: Yes (Other)
  Sender: FDA-Public Use
  Company Number: GB-GLAXOSMITHKLINE-GB2020122453

PATIENT
  Age: 48 Year
  Sex: Male
  Weight: 95.25 kg

DRUGS (1)
  1. AVAMYS [Suspect]
     Active Substance: FLUTICASONE FUROATE
     Indication: SINUSITIS
     Dosage: 4 DF, QD(2 SPRAYS PER NOSTRIL)
     Route: 045
     Dates: start: 20191122, end: 20200601

REACTIONS (2)
  - Abdominal discomfort [Recovered/Resolved with Sequelae]
  - Abdominal pain lower [Recovered/Resolved with Sequelae]

NARRATIVE: CASE EVENT DATE: 20191122
